FAERS Safety Report 7118016 (Version 3)
Quarter: 2013Q1

REPORT INFORMATION
  Report Type: Spontaneous
  Country: US (occurrence: US)
  Receive Date: 20090918
  Receipt Date: 20130329
  Transmission Date: 20140127
  Serious: Yes (Hospitalization, Other)
  Sender: FDA-Public Use
  Company Number: US-BIOGENIDEC-2009BI029254

PATIENT
  Age: 53 Year
  Sex: Male

DRUGS (1)
  1. AVONEX [Suspect]
     Indication: MULTIPLE SCLEROSIS
     Route: 030
     Dates: start: 20020816, end: 2006

REACTIONS (12)
  - Cerebrovascular accident [Not Recovered/Not Resolved]
  - Cerebral haemorrhage [Unknown]
  - Transient ischaemic attack [Unknown]
  - Blood pressure management [Unknown]
  - Gastric haemorrhage [Unknown]
  - Surgery [Unknown]
  - Multiple sclerosis [Unknown]
  - Hiccups [Unknown]
  - Muscle spasticity [Unknown]
  - Fatigue [Unknown]
  - Muscular weakness [Not Recovered/Not Resolved]
  - Pain [Unknown]
